FAERS Safety Report 6183803-5 (Version None)
Quarter: 2009Q2

REPORT INFORMATION
  Report Type: 
  Country: None (occurrence: None)
  Receive Date: 20090506
  Receipt Date: 20090422
  Transmission Date: 20091009
  Serious: Yes (Other)
  Sender: FDA-Public Use
  Company Number: 1000005547

PATIENT
  Age: 78 Year
  Sex: Male
  Weight: 43 kg

DRUGS (6)
  1. MEMANTINE HCL [Suspect]
     Indication: ABNORMAL BEHAVIOUR
     Dosage: 10 MG (10 MG, 1 IN 1 D), ORAL
     Route: 048
     Dates: start: 20080918, end: 20090113
  2. MEMANTINE HCL [Suspect]
     Indication: DEMENTIA
     Dosage: 10 MG (10 MG, 1 IN 1 D), ORAL
     Route: 048
     Dates: start: 20080918, end: 20090113
  3. KARDEGIC [Concomitant]
  4. CACIT D3 [Concomitant]
  5. ARICEPT [Concomitant]
  6. DOLIPRANE [Concomitant]

REACTIONS (1)
  - GRAND MAL CONVULSION [None]
